FAERS Safety Report 4515763-4 (Version None)
Quarter: 2004Q4

REPORT INFORMATION
  Report Type: 
  Country: None (occurrence: None)
  Receive Date: 20041201
  Receipt Date: 20041118
  Transmission Date: 20050328
  Serious: Yes (Death, Life-Threatening, Hospitalization)
  Sender: FDA-Public Use
  Company Number: US-MERCK-0411USA03263

PATIENT
  Age: 82 Year
  Sex: Male

DRUGS (4)
  1. CANCIDAS [Suspect]
     Indication: FUNGAL INFECTION
     Route: 042
  2. CANCIDAS [Suspect]
     Route: 042
  3. PRIMAXIN [Concomitant]
     Route: 042
  4. AMINO ACIDS (UNSPECIFIED) AND CARBOHYDRATES (UNSPECIFIED) AND ELECTROL [Concomitant]
     Route: 065

REACTIONS (1)
  - MULTI-ORGAN FAILURE [None]
